FAERS Safety Report 7069944-9 (Version None)
Quarter: 2010Q4

REPORT INFORMATION
  Report Type: 
  Country: None (occurrence: None)
  Receive Date: 20101028
  Receipt Date: 20100817
  Transmission Date: 20110411
  Serious: Yes (Other)
  Sender: FDA-Public Use
  Company Number: US-WYE-H16228410

PATIENT
  Sex: Female
  Weight: 58.11 kg

DRUGS (7)
  1. EFFEXOR [Suspect]
     Dosage: UNKNOWN
  2. REBIF [Suspect]
     Dosage: UNKNOWN
  3. BUPROPION HYDROCHLORIDE [Concomitant]
     Dosage: UNKNOWN
  4. CELEXA [Suspect]
     Dosage: UNKNOWN
  5. SINGULAIR [Suspect]
     Dosage: UNKNOWN
  6. NEURONTIN [Concomitant]
     Dosage: UNKNOWN
  7. CYMBALTA [Suspect]
     Dosage: UNKNOWN

REACTIONS (10)
  - ABDOMINAL PAIN UPPER [None]
  - CARDIAC ARREST [None]
  - DEPRESSED MOOD [None]
  - HYPERHIDROSIS [None]
  - MUSCULOSKELETAL PAIN [None]
  - MUSCULOSKELETAL STIFFNESS [None]
  - NAUSEA [None]
  - PAIN [None]
  - PALPITATIONS [None]
  - PRURITUS [None]
